FAERS Safety Report 25208004 (Version 1)
Quarter: 2025Q2

REPORT INFORMATION
  Report Type: Spontaneous
  Country: US (occurrence: None)
  Receive Date: 20250416
  Receipt Date: 20250416
  Transmission Date: 20250717
  Serious: Yes (Life-Threatening, Disabling)
  Sender: FDA-CTU
  Company Number: None

PATIENT
  Age: 27 Year
  Sex: Male
  Weight: 108 kg

DRUGS (9)
  1. ATOMOXETINE [Suspect]
     Active Substance: ATOMOXETINE
  2. BUPROPION [Concomitant]
     Active Substance: BUPROPION
     Dates: start: 20250324, end: 20250329
  3. AMANTADINE [Concomitant]
     Active Substance: AMANTADINE
  4. RISPERIDONE [Concomitant]
     Active Substance: RISPERIDONE
  5. BUPROPION [Concomitant]
     Active Substance: BUPROPION
  6. INVEGA [Concomitant]
     Active Substance: PALIPERIDONE
  7. INVEGA SUSTENNA [Concomitant]
     Active Substance: PALIPERIDONE PALMITATE
  8. OMEGA 3 [Concomitant]
     Active Substance: CAPSAICIN
  9. TEA [Concomitant]
     Active Substance: TEA LEAF

REACTIONS (8)
  - Dermatitis contact [None]
  - Blepharitis [None]
  - Throat irritation [None]
  - Sleep disorder [None]
  - Impaired quality of life [None]
  - Cough [None]
  - Product formulation issue [None]
  - Product formulation issue [None]

NARRATIVE: CASE EVENT DATE: 20250411
